FAERS Safety Report 8004791-2 (Version None)
Quarter: 2011Q4

REPORT INFORMATION
  Report Type: 
  Country: None (occurrence: None)
  Receive Date: 20111223
  Receipt Date: 20111215
  Transmission Date: 20120403
  Serious: No
  Sender: FDA-Public Use
  Company Number: JP-ASTELLAS-2011US007751

PATIENT
  Sex: Female
  Weight: 52 kg

DRUGS (6)
  1. TARCEVA [Suspect]
     Indication: NON-SMALL CELL LUNG CANCER
     Dosage: 150 MG, UID/QD
     Route: 048
     Dates: start: 20110405, end: 20110718
  2. TARCEVA [Suspect]
     Indication: LUNG ADENOCARCINOMA
     Dosage: 100 MG, UID/QD
     Route: 048
     Dates: start: 20110719, end: 20110913
  3. AMLODIPINE [Concomitant]
     Indication: HYPERTENSION
     Dosage: 5 MG, UID/QD
     Route: 048
     Dates: start: 20110405
  4. MUCOSTA [Concomitant]
     Indication: GASTRITIS
     Dosage: 100 MG, TID
     Route: 048
     Dates: start: 20110405, end: 20111025
  5. TARCEVA [Suspect]
     Dosage: 150 MG, UID/QD
     Route: 048
     Dates: start: 20110913, end: 20111025
  6. PREDNISOLONE [Concomitant]
     Indication: PROPHYLAXIS
     Dosage: 5 MG, UID/QD
     Route: 048
     Dates: start: 20110405, end: 20111025

REACTIONS (2)
  - VISUAL ACUITY REDUCED [None]
  - INCORRECT DOSE ADMINISTERED [None]
